FAERS Safety Report 6626659-6 (Version None)
Quarter: 2010Q1

REPORT INFORMATION
  Report Type: 
  Country: None (occurrence: None)
  Receive Date: 20100305
  Receipt Date: 20100224
  Transmission Date: 20100710
  Serious: Yes (Life-Threatening, Hospitalization)
  Sender: FDA-Public Use
  Company Number: DSJ-2010-02136

PATIENT
  Age: 69 Year
  Sex: Female

DRUGS (8)
  1. OLMESARTAN MEDOXOMIL [Suspect]
     Indication: HYPERTENSION
     Dosage: 20 MG (20 MG,1 IN 1 D), PER ORAL
     Route: 048
     Dates: start: 20091222, end: 20091225
  2. MAGMIT (MAGNESIUM OXIDE) (TABLET) (MAGNESIUM OXIDE) [Concomitant]
  3. ISONIAZID [Concomitant]
  4. BAKTAR (SULFAMETHOXAZOLE, TRIMETHOPRIM) (ORAL POWDER) (SULFAMETHOXAZOL [Concomitant]
  5. LASIX [Concomitant]
  6. ITRIZOLE (ITRACONAZOLE) (ITRACONAZOLE) [Concomitant]
  7. DECADRON [Concomitant]
  8. VELCADE [Concomitant]

REACTIONS (2)
  - BLOOD PRESSURE DECREASED [None]
  - RENAL FAILURE ACUTE [None]
